FAERS Safety Report 11713656 (Version 2)
Quarter: 2015Q4

REPORT INFORMATION
  Report Type: Spontaneous
  Country: JP (occurrence: JP)
  Receive Date: 20151109
  Receipt Date: 20151221
  Transmission Date: 20160304
  Serious: Yes (Death, Other)
  Sender: FDA-Public Use
  Company Number: JP-JNJFOC-20150422860

PATIENT
  Age: 67 Year
  Sex: Male

DRUGS (3)
  1. SOLU-MEDROL [Suspect]
     Active Substance: METHYLPREDNISOLONE SODIUM SUCCINATE
     Indication: HIV INFECTION
     Route: 042
     Dates: start: 20020817, end: 20020820
  2. DOXIL [Suspect]
     Active Substance: DOXORUBICIN HYDROCHLORIDE
     Indication: KAPOSI^S SARCOMA AIDS RELATED
     Dosage: 1 COURSE
     Route: 042
     Dates: start: 20020817, end: 20020817
  3. REMINARON [Concomitant]
     Active Substance: GABEXATE MESYLATE
     Indication: PANCREATITIS
     Route: 065

REACTIONS (7)
  - Pancreatitis acute [Fatal]
  - Anaemia [Not Recovered/Not Resolved]
  - Kaposi^s sarcoma AIDS related [Fatal]
  - Sepsis [Unknown]
  - Acute respiratory failure [Unknown]
  - Disseminated intravascular coagulation [Fatal]
  - Platelet count decreased [Fatal]

NARRATIVE: CASE EVENT DATE: 20020818
